FAERS Safety Report 7781102-9 (Version None)
Quarter: 2011Q3

REPORT INFORMATION
  Report Type: 
  Country: None (occurrence: None)
  Receive Date: 20110927
  Receipt Date: 20110915
  Transmission Date: 20111222
  Serious: Yes (Other)
  Sender: FDA-Public Use
  Company Number: PHHY2011BR82622

PATIENT
  Age: 59 Year
  Sex: Male

DRUGS (2)
  1. CHLORTHALIDONE [Concomitant]
     Dosage: 25 MG, PER DAY
  2. DIOVAN [Suspect]
     Dosage: 320 MG, UNK

REACTIONS (9)
  - HYPERTENSION [None]
  - OEDEMA [None]
  - OEDEMA PERIPHERAL [None]
  - CREATININE URINE INCREASED [None]
  - BLOOD PRESSURE INADEQUATELY CONTROLLED [None]
  - PROTEINURIA [None]
  - URINARY RETENTION [None]
  - GLOMERULONEPHRITIS MEMBRANOPROLIFERATIVE [None]
  - HAEMATURIA [None]
